FAERS Safety Report 5549626-2 (Version None)
Quarter: 2007Q4

REPORT INFORMATION
  Report Type: 
  Country: None (occurrence: None)
  Receive Date: 20071128
  Receipt Date: 20070823
  Transmission Date: 20080405
  Serious: Yes (Other)
  Sender: FDA-Public Use
  Company Number: 2007071217

PATIENT
  Age: 60 Year
  Sex: Female

DRUGS (1)
  1. EXUBERA [Suspect]

REACTIONS (3)
  - CHEST PAIN [None]
  - COUGH [None]
  - PULMONARY FUNCTION TEST DECREASED [None]
